FAERS Safety Report 8243397-7 (Version None)
Quarter: 2012Q1

REPORT INFORMATION
  Report Type: 
  Country: None (occurrence: None)
  Receive Date: 20120329
  Receipt Date: 20120323
  Transmission Date: 20120608
  Serious: No
  Sender: FDA-Public Use
  Company Number: US-PFIZER INC-2012075987

PATIENT
  Sex: Male

DRUGS (2)
  1. KEFLEX [Suspect]
     Dosage: 500 MG, 3X/DAY (1 TABLET, 7 DAYS, #21)
     Route: 048
     Dates: start: 20110520, end: 20110620
  2. BENZYLPENICILLIN POTASSIUM [Suspect]
     Dosage: UNK

REACTIONS (1)
  - DRUG HYPERSENSITIVITY [None]
